FAERS Safety Report 5107206-7 (Version None)
Quarter: 2006Q3

REPORT INFORMATION
  Report Type: 
  Country: None (occurrence: None)
  Receive Date: 20060913
  Receipt Date: 20060823
  Transmission Date: 20061208
  Serious: Yes (Death, Other)
  Sender: FDA-Public Use
  Company Number: USA040670141

PATIENT
  Age: 67 Year
  Sex: Female
  Weight: 79.5 kg

DRUGS (18)
  1. FORTEO [Suspect]
     Indication: OSTEOPOROSIS
     Dosage: 20 UG, DAILY (1/D)
     Dates: start: 20040315
  2. FORTEO PEN (FORTEO PEN) [Concomitant]
  3. PREDNISONE TAB [Concomitant]
  4. POTASSIUM (POTASSIUM) [Concomitant]
  5. MICRONASE [Concomitant]
  6. MAGNESIUM (MAGNESIUM ASPARTATE) [Concomitant]
  7. REGLAN [Concomitant]
  8. NORVASC [Concomitant]
  9. LASIX [Concomitant]
  10. TENORMIN [Concomitant]
  11. TYLENOL W/ CODEINE NO. 3 [Concomitant]
  12. ASPIRIN [Concomitant]
  13. FOSAMAX [Concomitant]
  14. EXTRA STRENGTH TYLENOL [Concomitant]
  15. CALCIUM (CALCIUM) [Concomitant]
  16. MULTI-VITAMIN [Concomitant]
  17. VITAMIN C (VITAMIN C) [Concomitant]
  18. MAALOX FAST BLOCKER [Concomitant]

REACTIONS (6)
  - ABASIA [None]
  - BRAIN OEDEMA [None]
  - CEREBRAL CYST [None]
  - CEREBROVASCULAR ACCIDENT [None]
  - HEMIPLEGIA [None]
  - OPHTHALMOPLEGIA [None]
